FAERS Safety Report 23698908 (Version 3)
Quarter: 2024Q2

REPORT INFORMATION
  Report Type: Spontaneous
  Country: DE (occurrence: DE)
  Receive Date: 20240402
  Receipt Date: 20240502
  Transmission Date: 20240715
  Serious: Yes (Other)
  Sender: FDA-Public Use
  Company Number: DE-AUROBINDO-AUR-APL-2024-011386

PATIENT
  Age: 71 Year
  Sex: Female
  Weight: 62 kg

DRUGS (12)
  1. MIRTAZAPINE [Interacting]
     Active Substance: MIRTAZAPINE
     Indication: Insomnia
     Dosage: UNK
     Route: 048
  2. MIRTAZAPINE [Interacting]
     Active Substance: MIRTAZAPINE
     Indication: Depression
     Dosage: 1 DOSAGE FORM, QD, 1 DOSAGE FORM IN MORNING
     Route: 048
     Dates: start: 202403
  3. MIRTAZAPINE [Interacting]
     Active Substance: MIRTAZAPINE
     Dosage: UNK
     Route: 048
  4. MIRTAZAPINE [Interacting]
     Active Substance: MIRTAZAPINE
     Indication: Depression
     Dosage: 30 MILLIGRAM, QD (DAILY (IN THE EVENING))
     Route: 048
     Dates: start: 202401
  5. MIRTAZAPINE [Interacting]
     Active Substance: MIRTAZAPINE
     Dosage: 1 DOSAGE FORM, QD, 1 DOSAGE FORM, DAILY IN MORNING
     Route: 048
     Dates: start: 202403
  6. MIRTAZAPINE [Interacting]
     Active Substance: MIRTAZAPINE
     Indication: Depression
     Dosage: 45 MILLIGRAM, QD (DAILY (IN THE EVENING))
     Route: 048
     Dates: start: 202402, end: 202402
  7. MIRTAZAPINE [Interacting]
     Active Substance: MIRTAZAPINE
     Indication: Depression
     Dosage: DAILY (IN THE EVENING)
     Route: 048
     Dates: start: 202310
  8. QUETIAPINE [Suspect]
     Active Substance: QUETIAPINE
     Indication: Depression
     Dosage: 1 DOSAGE FORM, QD, 1 DOSAGE FORM IN MORNING
     Route: 048
     Dates: start: 202403
  9. QUETIAPINE [Suspect]
     Active Substance: QUETIAPINE
     Dosage: 150 MILLIGRAM, QD (DAILY (IN THE MORNING))
     Route: 048
     Dates: start: 202403
  10. VENLAFAXINE HYDROCHLORIDE [Interacting]
     Active Substance: VENLAFAXINE HYDROCHLORIDE
     Indication: Depression
     Dosage: UNK, ONCE A DAY (IN THE EVENING)
     Route: 048
     Dates: start: 202401
  11. VENLAFAXINE HYDROCHLORIDE [Interacting]
     Active Substance: VENLAFAXINE HYDROCHLORIDE
     Dosage: 75 MILLIGRAM, EVERY MORNING
     Route: 048
     Dates: start: 202401
  12. LEUCOVORIN [Concomitant]
     Active Substance: LEUCOVORIN\LEUCOVORIN CALCIUM
     Indication: Supplementation therapy
     Dosage: UNK
     Route: 048

REACTIONS (12)
  - Suicidal ideation [Recovered/Resolved]
  - Condition aggravated [Unknown]
  - Restlessness [Not Recovered/Not Resolved]
  - Feeling abnormal [Not Recovered/Not Resolved]
  - Palpitations [Not Recovered/Not Resolved]
  - Hyperhidrosis [Not Recovered/Not Resolved]
  - Drug interaction [Not Recovered/Not Resolved]
  - Heart rate increased [Not Recovered/Not Resolved]
  - Diarrhoea [Not Recovered/Not Resolved]
  - Insomnia [Not Recovered/Not Resolved]
  - Back pain [Not Recovered/Not Resolved]
  - Off label use [Unknown]
